FAERS Safety Report 6132346-3 (Version None)
Quarter: 2009Q1

REPORT INFORMATION
  Report Type: 
  Country: None (occurrence: None)
  Receive Date: 20090324
  Receipt Date: 20090311
  Transmission Date: 20090719
  Serious: No
  Sender: FDA-Public Use
  Company Number: 2009-191604-NL

PATIENT
  Sex: Female

DRUGS (1)
  1. ROCURONIUM BROMIDE [Suspect]
     Indication: ANAESTHESIA
     Dosage: INTRAVENOUS (NOS)
     Route: 042

REACTIONS (2)
  - APNOEA [None]
  - RECURRENCE OF NEUROMUSCULAR BLOCKADE [None]
